FAERS Safety Report 10203351 (Version 4)
Quarter: 2014Q2

REPORT INFORMATION
  Report Type: Report from Study
  Country: GR (occurrence: GR)
  Receive Date: 20140529
  Receipt Date: 20140620
  Transmission Date: 20141212
  Serious: Yes (Life-Threatening, Hospitalization, Disabling)
  Sender: FDA-Public Use
  Company Number: PHHY2014GR015918

PATIENT
  Age: 78 Year
  Sex: Female
  Weight: 58 kg

DRUGS (3)
  1. EXJADE [Suspect]
     Indication: CHELATION THERAPY
     Dosage: 1 G, DAILY
     Route: 048
     Dates: start: 20130902, end: 201311
  2. FUROSEMIDE [Concomitant]
     Dosage: 20 MG, UNK
  3. LINOPRIL [Concomitant]
     Dosage: 10 MG, UNK

REACTIONS (15)
  - Pleural effusion [Recovered/Resolved with Sequelae]
  - Anaemia [Recovering/Resolving]
  - Dyspnoea [Recovering/Resolving]
  - Renal failure acute [Recovering/Resolving]
  - Haemoglobin decreased [Recovering/Resolving]
  - Blood sodium abnormal [Recovering/Resolving]
  - Blood potassium abnormal [Recovering/Resolving]
  - Cardiac failure [Recovered/Resolved with Sequelae]
  - Ejection fraction decreased [Recovered/Resolved with Sequelae]
  - Pulmonary hypertension [Recovered/Resolved with Sequelae]
  - Pericardial effusion [Unknown]
  - Dehydration [Recovered/Resolved with Sequelae]
  - Urine output decreased [Recovered/Resolved with Sequelae]
  - Oedema peripheral [Recovered/Resolved with Sequelae]
  - C-reactive protein decreased [Unknown]
